FAERS Safety Report 16179487 (Version 4)
Quarter: 2020Q2

REPORT INFORMATION
  Report Type: Report from Study
  Country: IL (occurrence: IL)
  Receive Date: 20190410
  Receipt Date: 20200529
  Transmission Date: 20200713
  Serious: Yes (Hospitalization)
  Sender: FDA-Public Use
  Company Number: IL-ACTELION-A-CH2019-188638

PATIENT
  Age: 42 Year
  Sex: Female

DRUGS (4)
  1. SILDENAFIL. [Concomitant]
     Active Substance: SILDENAFIL
     Dosage: UNK
  2. ELTROXIN [Concomitant]
     Active Substance: LEVOTHYROXINE
  3. OPSUMIT [Suspect]
     Active Substance: MACITENTAN
     Indication: PULMONARY ARTERIAL HYPERTENSION
     Dosage: 10 MG, QD
     Route: 048
     Dates: start: 20180118
  4. FOLIFERIN [Concomitant]

REACTIONS (13)
  - Sepsis [Recovered/Resolved]
  - Oophorectomy [Recovered/Resolved]
  - Fallopian tube operation [Recovered/Resolved]
  - Iron deficiency [Not Recovered/Not Resolved]
  - Device related infection [Recovered/Resolved]
  - Dizziness [Not Recovered/Not Resolved]
  - Haemoglobin decreased [Recovered/Resolved]
  - Presyncope [Not Recovered/Not Resolved]
  - Asthenia [Recovered/Resolved]
  - Haemoglobin increased [Unknown]
  - Pelvic abscess [Recovered/Resolved]
  - Pyrexia [Recovered/Resolved]
  - Vertigo [Not Recovered/Not Resolved]

NARRATIVE: CASE EVENT DATE: 201902
